FAERS Safety Report 12404014 (Version 2)
Quarter: 2016Q3

REPORT INFORMATION
  Report Type: Spontaneous
  Country: US (occurrence: US)
  Receive Date: 20160525
  Receipt Date: 20160706
  Transmission Date: 20161109
  Serious: No
  Sender: FDA-Public Use
  Company Number: US-GLAXOSMITHKLINE-US2016066230

PATIENT
  Age: 59 Year
  Sex: Male

DRUGS (4)
  1. SIMVASTATIN. [Concomitant]
     Active Substance: SIMVASTATIN
  2. TANZEUM [Suspect]
     Active Substance: ALBIGLUTIDE
     Indication: DIABETES MELLITUS
     Dosage: 50 MG, WE
     Route: 058
     Dates: start: 201505
  3. GLIPIZIDE. [Concomitant]
     Active Substance: GLIPIZIDE
  4. LISINOPRIL. [Concomitant]
     Active Substance: LISINOPRIL

REACTIONS (4)
  - Device use error [Unknown]
  - Drug ineffective [Not Recovered/Not Resolved]
  - Product quality issue [Unknown]
  - Laceration [Recovered/Resolved]

NARRATIVE: CASE EVENT DATE: 201505
